FAERS Safety Report 9066533 (Version 1)
Quarter: 2013Q1

REPORT INFORMATION
  Report Type: Report from Study
  Country: US (occurrence: US)
  Receive Date: 20130131
  Receipt Date: 20130131
  Transmission Date: 20140127
  Serious: No
  Sender: FDA-Public Use
  Company Number: US-ABBOTT-12P-163-1007893-00

PATIENT
  Age: 43 Year
  Sex: Male

DRUGS (4)
  1. HUMIRA [Suspect]
     Indication: COLITIS ULCERATIVE
     Route: 058
     Dates: start: 20120827
  2. PRAVASTATIN [Concomitant]
     Indication: BLOOD CHOLESTEROL INCREASED
  3. ALENDRONATE [Concomitant]
     Indication: BLOOD CALCIUM DECREASED
     Dosage: WEEKLY
  4. KEPPRA [Concomitant]
     Indication: CONVULSION PROPHYLAXIS

REACTIONS (7)
  - Colitis ulcerative [Recovering/Resolving]
  - Diarrhoea haemorrhagic [Recovering/Resolving]
  - Faecal incontinence [Recovering/Resolving]
  - Frequent bowel movements [Recovering/Resolving]
  - Pain [Recovering/Resolving]
  - Decreased appetite [Recovering/Resolving]
  - Injection site pain [Unknown]
